FAERS Safety Report 8291488-7 (Version None)
Quarter: 2012Q2

REPORT INFORMATION
  Report Type: 
  Country: None (occurrence: None)
  Receive Date: 20120417
  Receipt Date: 20120405
  Transmission Date: 20120825
  Serious: Yes (Other)
  Sender: FDA-Public Use
  Company Number: FR-TEVA-271609ISR

PATIENT
  Sex: Female

DRUGS (1)
  1. COPAXONE [Suspect]

REACTIONS (21)
  - DIARRHOEA [None]
  - ERYTHEMA [None]
  - URINARY INCONTINENCE [None]
  - NAUSEA [None]
  - MUSCLE SPASMS [None]
  - CHILLS [None]
  - PALLOR [None]
  - ABDOMINAL PAIN [None]
  - NASAL CONGESTION [None]
  - RESPIRATORY DISORDER [None]
  - BLOOD PRESSURE DECREASED [None]
  - MICTURITION URGENCY [None]
  - PRESYNCOPE [None]
  - SWELLING FACE [None]
  - DYSPNOEA [None]
  - PARAESTHESIA [None]
  - TACHYCARDIA [None]
  - APHASIA [None]
  - EYELID OEDEMA [None]
  - FALL [None]
  - BALANCE DISORDER [None]
